FAERS Safety Report 23870665 (Version 2)
Quarter: 2024Q2

REPORT INFORMATION
  Report Type: Spontaneous
  Country: NL (occurrence: NL)
  Receive Date: 20240518
  Receipt Date: 20240531
  Transmission Date: 20240716
  Serious: Yes (Other)
  Sender: FDA-Public Use
  Company Number: NL-TEVA-VS-3197860

PATIENT
  Age: 86 Year
  Sex: Male

DRUGS (8)
  1. METOPROLOL [Suspect]
     Active Substance: METOPROLOL
     Indication: Ventricular tachycardia
     Route: 065
  2. EPLERENONE [Concomitant]
     Active Substance: EPLERENONE
     Indication: Proteinuria
     Route: 065
  3. QUINAPRIL [Concomitant]
     Active Substance: QUINAPRIL
     Indication: Proteinuria
     Route: 065
  4. BUMETANIDE [Concomitant]
     Active Substance: BUMETANIDE
     Indication: Product used for unknown indication
     Route: 065
  5. PERINDOPRIL [Concomitant]
     Active Substance: PERINDOPRIL
     Indication: Product used for unknown indication
     Route: 065
  6. AMIODARONE [Suspect]
     Active Substance: AMIODARONE
     Indication: Ventricular tachycardia
     Route: 065
  7. AMIODARONE [Suspect]
     Active Substance: AMIODARONE
     Indication: Ventricular tachycardia
     Dosage: RECEIVED INITIAL LOADING DOSE
     Route: 065
  8. AMIODARONE [Suspect]
     Active Substance: AMIODARONE
     Indication: Ventricular tachycardia
     Dosage: RECEIVED INITIAL LOADING DOSE 3 TIMES A DAY
     Route: 065

REACTIONS (6)
  - Drug ineffective [Unknown]
  - Blood parathyroid hormone increased [Unknown]
  - Renal tubular acidosis [Unknown]
  - Renal impairment [Recovered/Resolved]
  - Metabolic acidosis [Unknown]
  - Renal phospholipidosis [Recovering/Resolving]
